FAERS Safety Report 10342893 (Version 1)
Quarter: 2014Q3

REPORT INFORMATION
  Report Type: Spontaneous
  Country: US (occurrence: None)
  Receive Date: 20140723
  Receipt Date: 20140723
  Transmission Date: 20150326
  Serious: Yes (Other)
  Sender: FDA-Public Use
  Company Number: SP08075

PATIENT
  Age: 53 Year
  Sex: Female
  Weight: 55.79 kg

DRUGS (1)
  1. MOVIPREP [Suspect]
     Active Substance: ASCORBIC ACID\POLYETHYLENE GLYCOL 3350\POTASSIUM CHLORIDE\SODIUM ASCORBATE\SODIUM CHLORIDE\SODIUM SULFATE
     Indication: BOWEL PREPARATION
     Route: 048
     Dates: start: 201407, end: 201407

REACTIONS (3)
  - Swelling face [None]
  - Blood pressure increased [None]
  - Eye swelling [None]

NARRATIVE: CASE EVENT DATE: 201407
